FAERS Safety Report 6295799-6 (Version None)
Quarter: 2009Q3

REPORT INFORMATION
  Report Type: 
  Country: None (occurrence: None)
  Receive Date: 20090803
  Receipt Date: 20090803
  Transmission Date: 20100115
  Serious: No
  Sender: FDA-Public Use
  Company Number: None

PATIENT
  Age: 58 Year
  Sex: Female

DRUGS (4)
  1. ROCEPHIN [Suspect]
     Dosage: 2 GRAMS IV B.I.D.
     Route: 042
     Dates: start: 20071109, end: 20071112
  2. CYMBALTA [Suspect]
     Dosage: 30MG DAILY
     Dates: start: 20071018, end: 20071106
  3. VANCOMYCIN [Concomitant]
  4. LEVAQUIN [Concomitant]

REACTIONS (19)
  - ALANINE AMINOTRANSFERASE INCREASED [None]
  - ARTHRALGIA [None]
  - ASPARTATE AMINOTRANSFERASE INCREASED [None]
  - BACTERIA URINE IDENTIFIED [None]
  - BLOOD ALBUMIN DECREASED [None]
  - BLOOD BILIRUBIN INCREASED [None]
  - BLOOD CREATINE PHOSPHOKINASE INCREASED [None]
  - BLOOD UREA INCREASED [None]
  - DEPRESSED LEVEL OF CONSCIOUSNESS [None]
  - DRUG RESISTANCE [None]
  - ENCEPHALOPATHY [None]
  - HEART RATE INCREASED [None]
  - HEPATITIS C ANTIBODY POSITIVE [None]
  - HYPERTENSION [None]
  - INTENTIONAL DRUG MISUSE [None]
  - LIVER INJURY [None]
  - MENINGITIS [None]
  - MENTAL STATUS CHANGES [None]
  - TOXICOLOGIC TEST ABNORMAL [None]
